FAERS Safety Report 7821193-X (Version None)
Quarter: 2011Q4

REPORT INFORMATION
  Report Type: 
  Country: None (occurrence: None)
  Receive Date: 20111018
  Receipt Date: 20110926
  Transmission Date: 20120403
  Serious: No
  Sender: FDA-Public Use
  Company Number: US-ROXANE LABORATORIES, INC.-2011-RO-01367RO

PATIENT
  Sex: Female

DRUGS (1)
  1. CILOSTAZOL [Suspect]
     Indication: PERIPHERAL ARTERIAL OCCLUSIVE DISEASE
     Dosage: 100 MG
     Route: 048
     Dates: start: 20110701, end: 20110701

REACTIONS (3)
  - GAIT DISTURBANCE [None]
  - ARTHRITIS [None]
  - PAIN [None]
